FAERS Safety Report 6341908-X (Version None)
Quarter: 2009Q3

REPORT INFORMATION
  Report Type: 
  Country: None (occurrence: None)
  Receive Date: 20090904
  Receipt Date: 20090824
  Transmission Date: 20100115
  Serious: Yes (Other)
  Sender: FDA-Public Use
  Company Number: PHHY2009IE36038

PATIENT
  Sex: Female

DRUGS (3)
  1. CLOZARIL [Suspect]
     Indication: SCHIZOPHRENIA
     Dosage: 250 MG PER DAY
     Route: 048
     Dates: start: 20090701, end: 20090824
  2. CARBAMAZEPINE [Concomitant]
     Indication: EPILEPSY
  3. GABAPENTIN [Concomitant]

REACTIONS (5)
  - BLOOD CREATININE INCREASED [None]
  - BLOOD SODIUM ABNORMAL [None]
  - MYOCLONIC EPILEPSY [None]
  - RENAL IMPAIRMENT [None]
  - SARCOIDOSIS [None]
